FAERS Safety Report 19872959 (Version 1)
Quarter: 2021Q3

REPORT INFORMATION
  Report Type: Spontaneous
  Country: US (occurrence: US)
  Receive Date: 20210922
  Receipt Date: 20210922
  Transmission Date: 20211014
  Serious: No
  Sender: FDA-Public Use
  Company Number: US-ASTRAZENECA-2021A727593

PATIENT
  Age: 59 Year
  Sex: Female

DRUGS (3)
  1. OCREVUS (OCRELIZUMAB) UNKNOWN [Concomitant]
     Indication: MULTIPLE SCLEROSIS
  2. CRESTOR [Suspect]
     Active Substance: ROSUVASTATIN CALCIUM
     Dosage: UNKNOWN
     Route: 065
     Dates: end: 20210812
  3. AUBAGIO [Suspect]
     Active Substance: TERIFLUNOMIDE
     Indication: MULTIPLE SCLEROSIS
     Route: 048
     Dates: start: 202107

REACTIONS (2)
  - Reading disorder [Unknown]
  - Arthralgia [Not Recovered/Not Resolved]
